FAERS Safety Report 9620124 (Version 1)
Quarter: 2013Q4

REPORT INFORMATION
  Report Type: Spontaneous
  Country: TR (occurrence: TR)
  Receive Date: 20131014
  Receipt Date: 20131014
  Transmission Date: 20140711
  Serious: Yes (Hospitalization, Other)
  Sender: FDA-Public Use
  Company Number: PHHY2013TR111339

PATIENT
  Age: 4 Year
  Sex: Female

DRUGS (1)
  1. AMITRIPTYLINE [Suspect]

REACTIONS (11)
  - Toxicity to various agents [Recovered/Resolved]
  - Encephalitis [Recovered/Resolved]
  - Balance disorder [Recovered/Resolved]
  - Speech disorder [Recovered/Resolved]
  - Blood pressure decreased [Recovered/Resolved]
  - Blood glucose increased [Recovered/Resolved]
  - Grand mal convulsion [Recovered/Resolved]
  - Syncope [Recovered/Resolved]
  - Coma scale abnormal [Recovered/Resolved]
  - Heart rate increased [Recovered/Resolved]
  - Accidental exposure to product [Recovered/Resolved]
